FAERS Safety Report 19446608 (Version 1)
Quarter: 2021Q2

REPORT INFORMATION
  Report Type: Spontaneous
  Country: GB (occurrence: GB)
  Receive Date: 20210622
  Receipt Date: 20210622
  Transmission Date: 20210717
  Serious: Yes (Hospitalization, Other)
  Sender: FDA-Public Use
  Company Number: GB-AUROBINDO-08-AUR-06177

PATIENT
  Age: 36 Year
  Sex: Female

DRUGS (1)
  1. IBUPROFEN  200 MG TABLETS [Suspect]
     Active Substance: IBUPROFEN
     Indication: HEADACHE
     Dosage: UNK
     Route: 048

REACTIONS (20)
  - Multi-organ disorder [Recovered/Resolved]
  - Face oedema [Recovering/Resolving]
  - Malaise [Recovering/Resolving]
  - White blood cell count increased [Recovering/Resolving]
  - Dermatitis exfoliative generalised [Recovering/Resolving]
  - Pruritus [Recovering/Resolving]
  - Pyrexia [Recovering/Resolving]
  - Lymphadenopathy [Recovering/Resolving]
  - Drug reaction with eosinophilia and systemic symptoms [Recovering/Resolving]
  - Blood creatinine increased [Recovering/Resolving]
  - Neutrophilia [Recovering/Resolving]
  - Rash maculo-papular [Recovering/Resolving]
  - Eosinophilia [Recovering/Resolving]
  - Red blood cell sedimentation rate increased [Recovering/Resolving]
  - Alanine aminotransferase increased [Recovering/Resolving]
  - C-reactive protein increased [Recovering/Resolving]
  - Granuloma [Recovering/Resolving]
  - Blood alkaline phosphatase increased [Recovering/Resolving]
  - Hepatic function abnormal [Recovering/Resolving]
  - Tubulointerstitial nephritis [Recovering/Resolving]
